FAERS Safety Report 8560901-X (Version None)
Quarter: 2012Q3

REPORT INFORMATION
  Report Type: 
  Country: None (occurrence: None)
  Receive Date: 20120727
  Receipt Date: 20120727
  Transmission Date: 20120928
  Serious: Yes (Hospitalization)
  Sender: FDA-Public Use
  Company Number: None

PATIENT
  Age: 64 Year
  Sex: Female
  Weight: 80.9 kg

DRUGS (14)
  1. TRIHEXYPHENIDYL HCL [Suspect]
     Indication: SCHIZOPHRENIA
     Dosage: 2MG 2/D PO RECENT
     Route: 048
  2. GLUCOPHAGE [Suspect]
  3. QUETIAPINE [Concomitant]
  4. FISH OIL [Concomitant]
  5. COZAAR [Concomitant]
  6. MAG OX [Concomitant]
  7. CALCIUM + VIT D [Concomitant]
  8. HYDRODIURIL [Concomitant]
  9. LEVOXYL [Concomitant]
  10. RISPERDAL [Concomitant]
  11. CRESTOR [Concomitant]
  12. WELLBUTRIN [Suspect]
     Indication: SMOKING CESSATION THERAPY
     Dosage: 150MG DAILY PO RECENT
     Route: 048
  13. LATUDA [Suspect]
     Indication: SCHIZOPHRENIA
     Dosage: 80MG DAILY PO RECENT
  14. PRILOSEC [Concomitant]

REACTIONS (1)
  - DIZZINESS [None]
